FAERS Safety Report 5171313-3 (Version None)
Quarter: 2006Q4

REPORT INFORMATION
  Report Type: 
  Country: None (occurrence: None)
  Receive Date: 20061208
  Receipt Date: 20061208
  Transmission Date: 20070319
  Serious: Yes (Life-Threatening, Disabling)
  Sender: FDA-Public Use
  Company Number: None

PATIENT
  Sex: Female
  Weight: 90.7194 kg

DRUGS (6)
  1. AMIODARONE HCL [Suspect]
     Indication: ATRIAL TACHYCARDIA
     Dosage: 1600 MG DAILY - ORAL THEN DECREASED TO 1200MG -} 800MG-}400MG-}200MG
     Dates: start: 20050101, end: 20060201
  2. ANTIHISTAMINES [Concomitant]
  3. BUMEX [Concomitant]
  4. IRON [Concomitant]
  5. PHOSLO [Concomitant]
  6. RENAGEL [Concomitant]

REACTIONS (15)
  - ALOPECIA [None]
  - ASTHENIA [None]
  - DYSGRAPHIA [None]
  - DYSKINESIA [None]
  - DYSPNOEA [None]
  - DYSPNOEA EXERTIONAL [None]
  - HAIR COLOUR CHANGES [None]
  - HEARING IMPAIRED [None]
  - HYPOAESTHESIA [None]
  - LUNG DISORDER [None]
  - MEMORY IMPAIRMENT [None]
  - PERSONALITY DISORDER [None]
  - SKIN DISORDER [None]
  - TREMOR [None]
  - VISUAL DISTURBANCE [None]
